FAERS Safety Report 5802277-4 (Version None)
Quarter: 2008Q3

REPORT INFORMATION
  Report Type: 
  Country: None (occurrence: None)
  Receive Date: 20080707
  Receipt Date: 20080627
  Transmission Date: 20090109
  Serious: Yes (Hospitalization)
  Sender: FDA-Public Use
  Company Number: US-SANOFI-SYNTHELABO-A03200801756

PATIENT
  Sex: Female
  Weight: 81.2 kg

DRUGS (7)
  1. ELOXATIN [Suspect]
     Indication: RECTAL CANCER
     Dosage: 130 MG OVER 2 HOURS
     Route: 042
     Dates: start: 20080430, end: 20080430
  2. ELOXATIN [Suspect]
     Dosage: UNK
     Route: 042
     Dates: start: 20080416, end: 20080416
  3. ELOXATIN [Suspect]
     Dosage: UNK
     Route: 042
     Dates: start: 20080402, end: 20080402
  4. FLUOROURACIL [Concomitant]
     Indication: RECTAL CANCER
     Route: 042
  5. LEUCOVORIN CALCIUM [Concomitant]
     Indication: RECTAL CANCER
     Route: 042
  6. MULTI-VITAMIN [Concomitant]
     Indication: DRUG USE FOR UNKNOWN INDICATION
     Route: 065
  7. LIPITOR [Concomitant]
     Indication: BLOOD CHOLESTEROL INCREASED
     Route: 048

REACTIONS (5)
  - DYSARTHRIA [None]
  - MUSCULOSKELETAL DISORDER [None]
  - PARAPARESIS [None]
  - PARESIS [None]
  - RESPIRATORY DISORDER [None]
